FAERS Safety Report 15235030 (Version 2)
Quarter: 2018Q4

REPORT INFORMATION
  Report Type: Report from Study
  Country: FR (occurrence: FR)
  Receive Date: 20180803
  Receipt Date: 20181102
  Transmission Date: 20190204
  Serious: Yes (Hospitalization)
  Sender: FDA-Public Use
  Company Number: FR-TEVA-2018-FR-934590

PATIENT
  Age: 73 Year

DRUGS (9)
  1. SORAFENIB [Suspect]
     Active Substance: SORAFENIB
     Indication: HEPATIC CANCER
     Route: 065
     Dates: start: 20140513
  2. PRAVASTATIN. [Suspect]
     Active Substance: PRAVASTATIN
     Indication: HEPATOCELLULAR CARCINOMA
     Route: 065
     Dates: start: 20140418, end: 20140430
  3. ONGLYZA [Concomitant]
     Active Substance: SAXAGLIPTIN HYDROCHLORIDE
     Indication: TYPE 2 DIABETES MELLITUS
     Route: 065
     Dates: start: 20140502
  4. PRAVASTATIN. [Suspect]
     Active Substance: PRAVASTATIN
     Route: 065
     Dates: start: 20140513
  5. SERESTA [Concomitant]
     Active Substance: OXAZEPAM
     Route: 065
     Dates: end: 20140430
  6. LEVOTHYROX [Concomitant]
     Active Substance: LEVOTHYROXINE
     Dosage: 50 MICROGRAM DAILY;
     Route: 065
  7. SORAFENIB [Suspect]
     Active Substance: SORAFENIB
     Indication: HEPATOCELLULAR CARCINOMA
     Route: 065
     Dates: start: 20140418, end: 20140430
  8. INEXIUM [Concomitant]
     Active Substance: ESOMEPRAZOLE
     Dosage: 40 MILLIGRAM DAILY;
     Route: 065
  9. PRAVASTATIN. [Suspect]
     Active Substance: PRAVASTATIN
     Indication: HEPATIC CANCER
     Route: 065
     Dates: start: 20140513

REACTIONS (2)
  - Product use in unapproved indication [Unknown]
  - Hepatic encephalopathy [Recovered/Resolved]

NARRATIVE: CASE EVENT DATE: 20140427
